FAERS Safety Report 25814132 (Version 1)
Quarter: 2025Q3

REPORT INFORMATION
  Report Type: Report from Study
  Country: US (occurrence: US)
  Receive Date: 20250917
  Receipt Date: 20250917
  Transmission Date: 20251021
  Serious: Yes (Other)
  Sender: ABBVIE
  Company Number: US-ABBVIE-6455702

PATIENT
  Sex: Male

DRUGS (2)
  1. HUMIRA [Suspect]
     Active Substance: ADALIMUMAB
     Indication: Rheumatoid arthritis
     Dosage: INJECT 40 MG SUBCUTANEOUSLY EVERY 14 DAYS
     Route: 058
  2. HUMIRA [Suspect]
     Active Substance: ADALIMUMAB
     Indication: Psoriasis
     Dosage: INJ 400.4ML, 40 MILLILITER, 2 EVERY 28 DAYS
     Route: 058

REACTIONS (4)
  - Intentional self-injury [Unknown]
  - Self-injurious ideation [Unknown]
  - Irritability [Unknown]
  - Frustration tolerance decreased [Unknown]
